FAERS Safety Report 14600141 (Version 2)
Quarter: 2018Q2

REPORT INFORMATION
  Report Type: Spontaneous
  Country: FR (occurrence: FR)
  Receive Date: 20180305
  Receipt Date: 20180402
  Transmission Date: 20180711
  Serious: Yes (Other)
  Sender: FDA-Public Use
  Company Number: FR-PFIZER INC-2018086420

PATIENT
  Age: 51 Year
  Sex: Female
  Weight: 78 kg

DRUGS (6)
  1. DEBRIDAT /00465202/ [Concomitant]
     Active Substance: TRIMEBUTINE
     Dosage: UNK
  2. ESOMEPRAZOLE [Concomitant]
     Active Substance: ESOMEPRAZOLE
     Dosage: UNK
  3. IMUREL /00001501/ [Suspect]
     Active Substance: AZATHIOPRINE SODIUM
     Indication: MULTIPLE SCLEROSIS
     Dosage: 25 MG, UNK
     Route: 048
     Dates: start: 2010
  4. PAROXETINE MESILATE [Suspect]
     Active Substance: PAROXETINE MESYLATE
     Dosage: UNK
     Route: 048
     Dates: start: 2014
  5. LYRICA [Suspect]
     Active Substance: PREGABALIN
     Dosage: UNK
     Route: 048
     Dates: start: 2014
  6. PROPRANOLOL [Suspect]
     Active Substance: PROPRANOLOL HYDROCHLORIDE
     Dosage: 40 MG, UNK
     Route: 048
     Dates: start: 2014

REACTIONS (3)
  - Liver injury [Not Recovered/Not Resolved]
  - Abdominal pain upper [Not Recovered/Not Resolved]
  - Abdominal pain [Not Recovered/Not Resolved]

NARRATIVE: CASE EVENT DATE: 2014
